FAERS Safety Report 18608279 (Version 2)
Quarter: 2021Q1

REPORT INFORMATION
  Report Type: Report from Study
  Country: US (occurrence: US)
  Receive Date: 20201212
  Receipt Date: 20210111
  Transmission Date: 20210419
  Serious: No
  Sender: FDA-Public Use
  Company Number: US-009507513-2012USA001015

PATIENT
  Sex: Female

DRUGS (1)
  1. JANUVIA [Suspect]
     Active Substance: SITAGLIPTIN PHOSPHATE
     Dosage: 50 MG/ ONCE DAILY
     Route: 048

REACTIONS (4)
  - Blood glucose increased [Unknown]
  - Anxiety [Unknown]
  - Circumstance or information capable of leading to medication error [Unknown]
  - Product dose omission issue [Unknown]
